FAERS Safety Report 8198386-8 (Version None)
Quarter: 2012Q1

REPORT INFORMATION
  Report Type: 
  Country: None (occurrence: None)
  Receive Date: 20120309
  Receipt Date: 20120308
  Transmission Date: 20120608
  Serious: No
  Sender: FDA-Public Use
  Company Number: US-PFIZER INC-2012062507

PATIENT
  Sex: Male
  Weight: 78 kg

DRUGS (4)
  1. VITAMIN D [Concomitant]
     Dosage: UNK
  2. LIPITOR [Suspect]
     Indication: BLOOD CHOLESTEROL INCREASED
     Dosage: 10 MG, 1X/DAY
     Route: 048
     Dates: start: 20050101, end: 20120227
  3. CALCIUM [Concomitant]
     Dosage: UNK
  4. ACETYLSALICYLIC ACID [Concomitant]
     Dosage: UNK, 1X/DAY

REACTIONS (2)
  - MUSCULAR WEAKNESS [None]
  - FATIGUE [None]
